FAERS Safety Report 18666235 (Version 1)
Quarter: 2020Q4

REPORT INFORMATION
  Report Type: Report from Study
  Country: EG (occurrence: EG)
  Receive Date: 20201226
  Receipt Date: 20201226
  Transmission Date: 20210114
  Serious: Yes (Other)
  Sender: FDA-Public Use
  Company Number: NVSC2020EG334563

PATIENT
  Age: 71 Year
  Sex: Female

DRUGS (9)
  1. GLIVEC [Suspect]
     Active Substance: IMATINIB MESYLATE
     Indication: CHRONIC MYELOID LEUKAEMIA
     Dosage: UNK
     Route: 065
  2. MULTIVITAMINS [Concomitant]
     Active Substance: VITAMINS
     Indication: PRODUCT USED FOR UNKNOWN INDICATION
     Dosage: UNK
     Route: 065
  3. GLIVEC [Suspect]
     Active Substance: IMATINIB MESYLATE
     Dosage: 1 DF, QD
     Route: 065
     Dates: start: 201804
  4. GLIVEC [Suspect]
     Active Substance: IMATINIB MESYLATE
     Dosage: UNK
     Route: 065
  5. TASIGNA [Suspect]
     Active Substance: NILOTINIB
     Indication: CHRONIC MYELOID LEUKAEMIA
     Dosage: 1 DF, QD
     Route: 065
  6. ELTROXIN [Concomitant]
     Active Substance: LEVOTHYROXINE
     Indication: PRODUCT USED FOR UNKNOWN INDICATION
     Dosage: 100 MG (EVERY OTHER DAY)
     Route: 065
  7. CALCIUM [Concomitant]
     Active Substance: CALCIUM
     Indication: PRODUCT USED FOR UNKNOWN INDICATION
     Dosage: UNK
     Route: 065
  8. GLIVEC [Suspect]
     Active Substance: IMATINIB MESYLATE
     Dosage: UNK
     Route: 065
  9. ELTROXIN [Concomitant]
     Active Substance: LEVOTHYROXINE
     Dosage: 50 MG (EVERY OTHER DAY)
     Route: 065

REACTIONS (15)
  - Abdominal discomfort [Recovered/Resolved]
  - Eye oedema [Not Recovered/Not Resolved]
  - Blood calcium decreased [Not Recovered/Not Resolved]
  - Nasopharyngitis [Recovering/Resolving]
  - Speech disorder [Recovered/Resolved]
  - Cataract [Not Recovered/Not Resolved]
  - Glycosylated haemoglobin increased [Unknown]
  - Renal failure [Not Recovered/Not Resolved]
  - Decreased appetite [Recovered/Resolved]
  - Movement disorder [Recovered/Resolved]
  - Cough [Recovering/Resolving]
  - Cytogenetic analysis abnormal [Not Recovered/Not Resolved]
  - Oropharyngeal pain [Recovering/Resolving]
  - Dyspnoea [Recovered/Resolved]
  - Anaemia [Not Recovered/Not Resolved]

NARRATIVE: CASE EVENT DATE: 201911
